FAERS Safety Report 13240210 (Version 1)
Quarter: 2017Q1

REPORT INFORMATION
  Report Type: Spontaneous
  Country: US (occurrence: US)
  Receive Date: 20170216
  Receipt Date: 20170216
  Transmission Date: 20170428
  Serious: Yes (Other)
  Sender: FDA-Public Use
  Company Number: US-PFIZER INC-2017059802

PATIENT
  Sex: Female

DRUGS (2)
  1. AZITHROMYCIN ANHYDROUS. [Suspect]
     Active Substance: AZITHROMYCIN ANHYDROUS
     Indication: KIDNEY INFECTION
     Dosage: 250 MG, UNK
  2. AZITHROMYCIN ANHYDROUS. [Suspect]
     Active Substance: AZITHROMYCIN ANHYDROUS
     Indication: SINUSITIS

REACTIONS (6)
  - Heart rate abnormal [Unknown]
  - Faeces discoloured [Unknown]
  - Haematochezia [Unknown]
  - Chest discomfort [Unknown]
  - Drug ineffective [Unknown]
  - Cardiac disorder [Unknown]
